FAERS Safety Report 22144812 (Version 5)
Quarter: 2023Q2

REPORT INFORMATION
  Report Type: Spontaneous
  Country: US (occurrence: US)
  Receive Date: 20230328
  Receipt Date: 20230422
  Transmission Date: 20230722
  Serious: Yes (Death, Hospitalization, Other)
  Sender: FDA-Public Use
  Company Number: US-UNITED THERAPEUTICS-UNT-2023-008552

PATIENT
  Age: 81 Year
  Sex: Male
  Weight: 61.224 kg

DRUGS (2)
  1. TYVASO [Suspect]
     Active Substance: TREPROSTINIL
     Indication: Pulmonary arterial hypertension
     Dosage: 18 ?G, QID
     Dates: start: 202303
  2. TYVASO [Suspect]
     Active Substance: TREPROSTINIL
     Dosage: UNK
     Dates: start: 20230313

REACTIONS (14)
  - Lung disorder [Fatal]
  - Pulmonary oedema [Unknown]
  - Pneumothorax [Unknown]
  - Dyspnoea at rest [Not Recovered/Not Resolved]
  - Oxygen saturation decreased [Unknown]
  - Hypertension [Unknown]
  - Anxiety [Unknown]
  - Productive cough [Unknown]
  - Sciatica [Unknown]
  - Poor quality sleep [Unknown]
  - Fatigue [Unknown]
  - Lethargy [Unknown]
  - Brain fog [Unknown]
  - Nervousness [Unknown]

NARRATIVE: CASE EVENT DATE: 20230301
